FAERS Safety Report 23102891 (Version 1)
Quarter: 2023Q4

REPORT INFORMATION
  Report Type: Spontaneous
  Country: US (occurrence: None)
  Receive Date: 20231022
  Receipt Date: 20231022
  Transmission Date: 20240109
  Serious: Yes (Hospitalization)
  Sender: FDA-Public Use
  Company Number: None

PATIENT
  Age: 73 Year
  Sex: Male

DRUGS (1)
  1. ACETAZOLAMIDE [Suspect]
     Active Substance: ACETAZOLAMIDE
     Dosage: FREQUENCY : 4 TIMES A DAY;?
     Route: 048
     Dates: start: 20211101, end: 20211115

REACTIONS (8)
  - Acidosis [None]
  - Agitation [None]
  - Hallucination [None]
  - Psychotic disorder [None]
  - Mental status changes [None]
  - Hypokalaemia [None]
  - Urinary retention [None]
  - Dementia [None]

NARRATIVE: CASE EVENT DATE: 20211108
